FAERS Safety Report 19277763 (Version 2)
Quarter: 2021Q2

REPORT INFORMATION
  Report Type: Spontaneous
  Country: JP (occurrence: JP)
  Receive Date: 20210520
  Receipt Date: 20210607
  Transmission Date: 20210717
  Serious: Yes (Other)
  Sender: FDA-Public Use
  Company Number: NVSJ2021JP007167

PATIENT
  Age: 76 Year
  Sex: Male
  Weight: 76 kg

DRUGS (1)
  1. ONBREZ INHALATION CAPSUL [Suspect]
     Active Substance: INDACATEROL
     Indication: CHRONIC OBSTRUCTIVE PULMONARY DISEASE
     Dosage: 150 UG
     Route: 055
     Dates: end: 20210114

REACTIONS (9)
  - Asthma-chronic obstructive pulmonary disease overlap syndrome [Recovering/Resolving]
  - Dyspnoea [Unknown]
  - Atrial fibrillation [Unknown]
  - Laryngeal cancer [Unknown]
  - Lung neoplasm malignant [Unknown]
  - Diabetes mellitus [Unknown]
  - Forced expiratory volume decreased [Recovering/Resolving]
  - Chronic obstructive pulmonary disease [Not Recovered/Not Resolved]
  - Sputum discoloured [Unknown]

NARRATIVE: CASE EVENT DATE: 20210114
